FAERS Safety Report 5795855-2 (Version None)
Quarter: 2008Q3

REPORT INFORMATION
  Report Type: 
  Country: None (occurrence: None)
  Receive Date: 20080701
  Receipt Date: 20080618
  Transmission Date: 20090109
  Serious: Yes (Hospitalization)
  Sender: FDA-Public Use
  Company Number: IT-NOVOPROD-275708

PATIENT
  Sex: Male
  Weight: 77 kg

DRUGS (4)
  1. LEVEMIR [Suspect]
     Indication: TYPE 2 DIABETES MELLITUS
     Dosage: 25 IU, QD
     Dates: start: 20071120
  2. WARFARIN SODIUM [Concomitant]
  3. ENALAPRIL MALEATE [Concomitant]
     Dosage: 1 TAB, QD
  4. THEO-DUR [Concomitant]
     Dosage: 2 TAB, QD

REACTIONS (3)
  - DYSPNOEA [None]
  - HEPATIC STEATOSIS [None]
  - PYREXIA [None]
